FAERS Safety Report 6827640-4 (Version None)
Quarter: 2010Q3

REPORT INFORMATION
  Report Type: 
  Country: None (occurrence: None)
  Receive Date: 20100709
  Receipt Date: 20070123
  Transmission Date: 20110219
  Serious: No
  Sender: FDA-Public Use
  Company Number: US-PFIZER INC-2007007363

PATIENT
  Sex: Female
  Weight: 68.04 kg

DRUGS (10)
  1. CHANTIX [Suspect]
     Indication: SMOKING CESSATION THERAPY
     Dates: start: 20070121
  2. VALSARTAN [Concomitant]
  3. CRESTOR [Concomitant]
  4. NEURONTIN [Concomitant]
  5. CYMBALTA [Concomitant]
  6. ACIPHEX [Concomitant]
  7. ZANTAC [Concomitant]
  8. TYLENOL W/ CODEINE [Concomitant]
  9. VICODIN [Concomitant]
  10. PERCOCET [Concomitant]

REACTIONS (1)
  - HYPERSOMNIA [None]
